FAERS Safety Report 9452856 (Version 1)
Quarter: 2013Q3

REPORT INFORMATION
  Report Type: Spontaneous
  Country: US (occurrence: US)
  Receive Date: 20130812
  Receipt Date: 20130812
  Transmission Date: 20140515
  Serious: Yes (Hospitalization, Other)
  Sender: FDA-Public Use
  Company Number: US-ALLERGAN-1311652US

PATIENT
  Age: 79 Year
  Sex: Male

DRUGS (4)
  1. RESTASIS [Suspect]
     Indication: DRY EYE
     Dosage: 2 GTT, BID
     Route: 047
     Dates: start: 2011, end: 2012
  2. RESTASIS [Suspect]
     Dosage: 2 GTT, BID
     Route: 047
     Dates: start: 201304
  3. REFRESH TEARS [Suspect]
     Indication: DRY EYE
     Dosage: 15-20 TIMES PER DAY
     Route: 047
  4. COUMADIN [Concomitant]
     Indication: ATRIAL FIBRILLATION
     Dosage: UNK
     Route: 048
     Dates: start: 2010

REACTIONS (8)
  - Cerebrovascular accident [Unknown]
  - Transient ischaemic attack [Unknown]
  - Carotid artery disease [Unknown]
  - Blindness transient [Unknown]
  - Wrong technique in drug usage process [Unknown]
  - Eye pain [Unknown]
  - Dry eye [Unknown]
  - Drug ineffective [Unknown]
